FAERS Safety Report 14140859 (Version 1)
Quarter: 2017Q4

REPORT INFORMATION
  Report Type: Spontaneous
  Country: US (occurrence: US)
  Receive Date: 20171030
  Receipt Date: 20171030
  Transmission Date: 20180321
  Serious: Yes (Hospitalization)
  Sender: FDA-Public Use
  Company Number: US-ROCHE-1985115

PATIENT
  Age: 42 Year
  Sex: Female
  Weight: 123.5 kg

DRUGS (1)
  1. ACTIVASE [Suspect]
     Active Substance: ALTEPLASE
     Indication: CEREBROVASCULAR ACCIDENT
     Route: 042
     Dates: start: 20170822, end: 20170822

REACTIONS (3)
  - Lip swelling [Recovered/Resolved]
  - Hypertension [Recovered/Resolved]
  - Withdrawal hypertension [Unknown]

NARRATIVE: CASE EVENT DATE: 20170822
